FAERS Safety Report 7344441-1 (Version None)
Quarter: 2011Q1

REPORT INFORMATION
  Report Type: 
  Country: None (occurrence: None)
  Receive Date: 20110310
  Receipt Date: 20110117
  Transmission Date: 20110831
  Serious: No
  Sender: FDA-Public Use
  Company Number: A0906486A

PATIENT
  Age: 23 Year
  Sex: Female

DRUGS (4)
  1. NICODERM CQ [Suspect]
  2. BUSPIRONE [Concomitant]
  3. NICORETTE (MINT) [Suspect]
  4. DIVALPROEX SODIUM [Concomitant]

REACTIONS (5)
  - FATIGUE [None]
  - NICOTINE DEPENDENCE [None]
  - ANXIETY [None]
  - ABNORMAL DREAMS [None]
  - DEPRESSION [None]
